FAERS Safety Report 13753112 (Version 1)
Quarter: 2017Q3

REPORT INFORMATION
  Report Type: Spontaneous
  Country: DK (occurrence: DK)
  Receive Date: 20170714
  Receipt Date: 20170714
  Transmission Date: 20171127
  Serious: Yes (Hospitalization)
  Sender: FDA-Public Use
  Company Number: DK-ELI_LILLY_AND_COMPANY-DK201707004892

PATIENT
  Sex: Male

DRUGS (2)
  1. CYRAMZA [Suspect]
     Active Substance: RAMUCIRUMAB
     Indication: CARDIAC NEOPLASM MALIGNANT
     Dosage: UNK, UNKNOWN
     Route: 065
     Dates: end: 20170525
  2. PACLITAXEL. [Concomitant]
     Active Substance: PACLITAXEL
     Indication: CARDIAC NEOPLASM MALIGNANT
     Dosage: UNK, UNKNOWN
     Route: 065
     Dates: end: 20170525

REACTIONS (6)
  - Intestinal stenosis [Unknown]
  - Large intestine perforation [Unknown]
  - Malignant neoplasm progression [Unknown]
  - Diverticulitis [Unknown]
  - Off label use [Unknown]
  - Peritonitis [Unknown]
